FAERS Safety Report 6972964-3 (Version None)
Quarter: 2010Q3

REPORT INFORMATION
  Report Type: 
  Country: None (occurrence: None)
  Receive Date: 20100909
  Receipt Date: 20100812
  Transmission Date: 20110219
  Serious: No
  Sender: FDA-Public Use
  Company Number: US-KINGPHARMUSA00001-K201001030

PATIENT

DRUGS (2)
  1. EMBEDA [Suspect]
     Dosage: UNK
  2. ANTIHYPERTENSIVES [Concomitant]
     Indication: BLOOD PRESSURE ABNORMAL

REACTIONS (1)
  - OEDEMA PERIPHERAL [None]
